FAERS Safety Report 6511039-4 (Version None)
Quarter: 2009Q4

REPORT INFORMATION
  Report Type: 
  Country: None (occurrence: None)
  Receive Date: 20091222
  Receipt Date: 20090217
  Transmission Date: 20100525
  Serious: No
  Sender: FDA-Public Use
  Company Number: US-ASTRAZENECA-2009UW04540

PATIENT
  Sex: Male

DRUGS (3)
  1. CRESTOR [Suspect]
     Route: 048
  2. CLARITHROMYCIN [Suspect]
     Route: 065
  3. CIPRO [Concomitant]

REACTIONS (1)
  - PAIN IN EXTREMITY [None]
